FAERS Safety Report 10631167 (Version 1)
Quarter: 2014Q4

REPORT INFORMATION
  Report Type: Spontaneous
  Country: CH (occurrence: None)
  Receive Date: 20141203
  Receipt Date: 20141203
  Transmission Date: 20150529
  Serious: Yes (Other)
  Sender: FDA-Public Use
  Company Number: 20140768

PATIENT
  Age: 63 Year
  Sex: Male

DRUGS (5)
  1. VENOFER [Suspect]
     Active Substance: IRON SUCROSE
     Indication: PRODUCT USED FOR UNKNOWN INDICATION
     Route: 041
     Dates: start: 20140919, end: 20140919
  2. AZARGA (TIMOLOL MALEATE, BRINZOLAMIDE) [Concomitant]
  3. ZYMAD (COLECALCIFEROL) [Concomitant]
  4. DOLIPRANE [Concomitant]
     Active Substance: ACETAMINOPHEN
  5. MANIDIPINE [Concomitant]
     Active Substance: MANIDIPINE

REACTIONS (14)
  - Pallor [None]
  - Eye movement disorder [None]
  - Diverticulum [None]
  - Paraesthesia [None]
  - Blood lactic acid increased [None]
  - Loss of consciousness [None]
  - Hypotension [None]
  - Haemoglobin decreased [None]
  - Incorrect drug administration rate [None]
  - Hyperhidrosis [None]
  - Vomiting [None]
  - Drug intolerance [None]
  - Paraesthesia oral [None]
  - Nausea [None]

NARRATIVE: CASE EVENT DATE: 20140919
